FAERS Safety Report 9421262 (Version 1)
Quarter: 2013Q3

REPORT INFORMATION
  Report Type: Spontaneous
  Country: US (occurrence: None)
  Receive Date: 20130724
  Receipt Date: 20130724
  Transmission Date: 20140515
  Serious: Yes (Hospitalization)
  Sender: FDA-Public Use
  Company Number: DSU-2013-04032

PATIENT
  Age: 90 Year
  Sex: Female

DRUGS (2)
  1. BENICAR [Suspect]
     Indication: HYPERTENSION
     Dosage: 10-20MG DAILY
     Route: 048
  2. BETA-BLOCKER [Suspect]
     Indication: CARDIAC FLUTTER
     Dates: start: 201306, end: 201306

REACTIONS (8)
  - Dyspnoea [None]
  - Fatigue [None]
  - Blood pressure fluctuation [None]
  - Atrial fibrillation [None]
  - Blood sodium decreased [None]
  - Dehydration [None]
  - Urinary tract infection [None]
  - Cardiac flutter [None]
